FAERS Safety Report 24741479 (Version 1)
Quarter: 2024Q4

REPORT INFORMATION
  Report Type: Spontaneous
  Country: US (occurrence: US)
  Receive Date: 20241217
  Receipt Date: 20241217
  Transmission Date: 20250115
  Serious: No
  Sender: ROCHE
  Company Number: US-ROCHE-10000154088

PATIENT
  Age: 46 Year
  Sex: Female
  Weight: 58.96 kg

DRUGS (10)
  1. XOLAIR [Suspect]
     Active Substance: OMALIZUMAB
     Indication: Urticaria chronic
     Route: 058
     Dates: start: 201607
  2. XOLAIR [Suspect]
     Active Substance: OMALIZUMAB
     Route: 058
  3. MONTELUKAST [Concomitant]
     Active Substance: MONTELUKAST SODIUM
     Indication: Asthma
     Dosage: STARTED BEFORE XOLAIR
     Route: 048
  4. LEVOTHYROXINE [Concomitant]
     Active Substance: LEVOTHYROXINE
     Indication: Autoimmune thyroiditis
     Dosage: STARTED BEFORE XOLAIR
     Route: 048
  5. CETIRIZINE HYDROCHLORIDE [Concomitant]
     Active Substance: CETIRIZINE HYDROCHLORIDE
     Indication: Hypersensitivity
     Dosage: TAKES 1 TABLET 1-2 TIMES DAILY; STARTED BEFORE XOLAIR
     Route: 048
  6. KETOTIFEN [Concomitant]
     Active Substance: KETOTIFEN
     Dosage: STARTED BEFORE XOLAIR
     Route: 048
  7. ESTRADIOL [Concomitant]
     Active Substance: ESTRADIOL
     Dosage: STARTED AFTER XOLAIR
     Route: 061
  8. CLOBETASOL [Concomitant]
     Active Substance: CLOBETASOL
     Indication: Psoriasis
     Dosage: USES LESS THAN ONCE A WEEK
     Route: 061
  9. ALBUTEROL [Concomitant]
     Active Substance: ALBUTEROL
     Indication: Asthma
     Dosage: TAKES 1-2 PUFFS UP TO 4 TIMES DAILY; STARTED BEFORE XOLAIR
     Route: 055
  10. EPIPEN [Concomitant]
     Active Substance: EPINEPHRINE
     Indication: Hypersensitivity
     Dosage: STARTED BEFORE XOLAIR
     Route: 058

REACTIONS (4)
  - Neuralgia [Not Recovered/Not Resolved]
  - Neck pain [Not Recovered/Not Resolved]
  - Menopause [Unknown]
  - Anxiety [Unknown]

NARRATIVE: CASE EVENT DATE: 20230101
